FAERS Safety Report 4824265-7 (Version None)
Quarter: 2005Q4

REPORT INFORMATION
  Report Type: 
  Country: None (occurrence: None)
  Receive Date: 20051108
  Receipt Date: 20051026
  Transmission Date: 20060501
  Serious: Yes (Hospitalization)
  Sender: FDA-Public Use
  Company Number: US_000643749

PATIENT
  Sex: Female

DRUGS (5)
  1. ILETIN II [Suspect]
     Indication: DIABETES MELLITUS
  2. LENTE ILETIN II (PORK) [Suspect]
     Indication: DIABETES MELLITUS
  3. HUMULIN N [Suspect]
     Indication: DIABETES MELLITUS
     Dates: start: 19910101
  4. LOTENSIN [Concomitant]
  5. ATENOLOL [Concomitant]

REACTIONS (4)
  - CAESAREAN SECTION [None]
  - DRUG EXPOSURE DURING PREGNANCY [None]
  - PREGNANCY [None]
  - PREMATURE BABY [None]
